FAERS Safety Report 4854657-1 (Version None)
Quarter: 2005Q4

REPORT INFORMATION
  Report Type: 
  Country: None (occurrence: None)
  Receive Date: 20051215
  Receipt Date: 20051207
  Transmission Date: 20060501
  Serious: Yes (Hospitalization)
  Sender: FDA-Public Use
  Company Number: US-MERCK-0512USA01189

PATIENT
  Age: 55 Year
  Sex: Female
  Weight: 82 kg

DRUGS (13)
  1. VIOXX [Suspect]
     Indication: ARTHRITIS
     Route: 048
     Dates: start: 20010402, end: 20040927
  2. PREVACID [Concomitant]
     Route: 065
  3. SYNTEST DS [Concomitant]
     Route: 065
  4. BUMETANIDE [Concomitant]
     Route: 065
  5. PAROXETINE [Concomitant]
     Route: 065
  6. ETODOLAC [Concomitant]
     Route: 065
  7. NEURONTIN [Concomitant]
     Route: 065
  8. TOPROL-XL [Concomitant]
     Route: 048
  9. ZOCOR [Concomitant]
     Route: 048
  10. ECOTRIN [Concomitant]
     Route: 065
  11. LORAZEPAM [Concomitant]
     Route: 065
  12. ACETAMINOPHEN AND PROPOXYPHENE HYDROCHLORIDE [Concomitant]
     Route: 065
  13. PROMETHAZINE HYDROCHLORIDE [Concomitant]
     Route: 065

REACTIONS (10)
  - ACUTE MYOCARDIAL INFARCTION [None]
  - ANXIETY [None]
  - ARTERIOSCLEROSIS CORONARY ARTERY [None]
  - EYE DISORDER [None]
  - GASTROOESOPHAGEAL REFLUX DISEASE [None]
  - INFECTION [None]
  - LOSS OF CONSCIOUSNESS [None]
  - MYOCARDIAL ISCHAEMIA [None]
  - POLYTRAUMATISM [None]
  - ROAD TRAFFIC ACCIDENT [None]
